FAERS Safety Report 16990025 (Version 1)
Quarter: 2019Q4

REPORT INFORMATION
  Report Type: Spontaneous
  Country: GB (occurrence: GB)
  Receive Date: 20191104
  Receipt Date: 20191104
  Transmission Date: 20200122
  Serious: Yes (Other)
  Sender: FDA-Public Use
  Company Number: GB-MYLANLABS-2019M1104059

PATIENT
  Age: 35 Year
  Sex: Female
  Weight: 77 kg

DRUGS (1)
  1. GLYCERYL TRINITRATE [Suspect]
     Active Substance: NITROGLYCERIN
     Indication: POST PROCEDURAL COMPLICATION
     Dosage: 5 MILLIGRAM (PLACED ONTO BREAST RECONSTRUCTION DIEP FREE FLAP)
     Route: 062
     Dates: start: 20171111, end: 20171112

REACTIONS (3)
  - Application site bruise [Unknown]
  - Skin necrosis [Recovered/Resolved with Sequelae]
  - Application site burn [Unknown]

NARRATIVE: CASE EVENT DATE: 20171111
